FAERS Safety Report 7183936-0 (Version None)
Quarter: 2010Q4

REPORT INFORMATION
  Report Type: 
  Country: None (occurrence: None)
  Receive Date: 20101222
  Receipt Date: 20101214
  Transmission Date: 20110411
  Serious: Yes (Hospitalization, Other)
  Sender: FDA-Public Use
  Company Number: FR-BRISTOL-MYERS SQUIBB COMPANY-15396179

PATIENT
  Age: 74 Year
  Sex: Female
  Weight: 70 kg

DRUGS (2)
  1. CAPTEA TABS [Suspect]
     Indication: HYPERTENSION
     Dosage: THERAPY START DATES: 02DEC07;15NOV10. 1DF=1 TABLET
     Route: 048
     Dates: start: 20071202, end: 20101115
  2. LEVOTHYROX [Concomitant]
     Dates: start: 20000101

REACTIONS (2)
  - HAEMATOMA [None]
  - THROMBOCYTOPENIA [None]
